FAERS Safety Report 4676430-X (Version None)
Quarter: 2005Q2

REPORT INFORMATION
  Report Type: 
  Country: None (occurrence: None)
  Receive Date: 20050527
  Receipt Date: 20050131
  Transmission Date: 20051028
  Serious: Yes (Other)
  Sender: FDA-Public Use
  Company Number: DE-MERCK-0502DEU00001

PATIENT
  Age: 56 Year
  Sex: Female

DRUGS (3)
  1. VIOXX [Suspect]
     Route: 048
     Dates: start: 20011204, end: 20030306
  2. OMEPRAZOLE [Concomitant]
     Indication: GASTRIC CYST
     Route: 048
  3. ASPIRIN [Concomitant]
     Route: 048

REACTIONS (9)
  - ABDOMINAL PAIN UPPER [None]
  - BRAIN STEM ISCHAEMIA [None]
  - FACIAL PAIN [None]
  - FEELING COLD [None]
  - HYPERTENSION [None]
  - MICROANGIOPATHY [None]
  - PARAESTHESIA ORAL [None]
  - VERTIGO [None]
  - VISUAL DISTURBANCE [None]
